FAERS Safety Report 4817709-8 (Version None)
Quarter: 2005Q3

REPORT INFORMATION
  Report Type: 
  Country: None (occurrence: None)
  Receive Date: 20050929
  Receipt Date: 20050804
  Transmission Date: 20060218
  Serious: No
  Sender: FDA-Public Use
  Company Number: 05P-163-0307499-00

PATIENT
  Age: 78 Year
  Sex: Female
  Weight: 54.4316 kg

DRUGS (5)
  1. HUMIRA [Suspect]
     Indication: RHEUMATOID ARTHRITIS
     Dosage: 40 MG, SUBCUTANEOUS
     Route: 058
     Dates: start: 20050414, end: 20050414
  2. METHOTREXATE [Concomitant]
  3. PREDNISONE [Concomitant]
  4. RISEDRONATE SODIUM [Concomitant]
  5. METOPROLOL SUCCINATE [Concomitant]

REACTIONS (4)
  - COUGH [None]
  - PHARYNGOLARYNGEAL PAIN [None]
  - VOMITING [None]
  - WHITE BLOOD CELL COUNT DECREASED [None]
